FAERS Safety Report 8126479-X (Version None)
Quarter: 2012Q1

REPORT INFORMATION
  Report Type: 
  Country: None (occurrence: None)
  Receive Date: 20120209
  Receipt Date: 20120203
  Transmission Date: 20120608
  Serious: Yes (Other)
  Sender: FDA-Public Use
  Company Number: FI-ASTRAZENECA-2012SE07547

PATIENT
  Age: 72 Year
  Sex: Female

DRUGS (1)
  1. VIMOVO [Suspect]
     Route: 048
     Dates: start: 20110101, end: 20110101

REACTIONS (1)
  - TRANSIENT ISCHAEMIC ATTACK [None]
